FAERS Safety Report 26168946 (Version 1)
Quarter: 2025Q4

REPORT INFORMATION
  Report Type: Spontaneous
  Country: US (occurrence: US)
  Receive Date: 20251217
  Receipt Date: 20251217
  Transmission Date: 20260118
  Serious: Yes (Hospitalization, Other)
  Sender: ACCORD
  Company Number: US-Accord-502080

PATIENT
  Age: 61 Year
  Sex: Male
  Weight: 60.69 kg

DRUGS (3)
  1. CARBOPLATIN [Suspect]
     Active Substance: CARBOPLATIN
     Indication: Small cell lung cancer
     Dosage: Q3W, IV DRIP
     Route: 042
     Dates: start: 20250618, end: 20250730
  2. ETOPOSIDE [Suspect]
     Active Substance: ETOPOSIDE
     Indication: Small cell lung cancer
     Dosage: Q3W, DAY 1 TO DAY 3 OF EACH CYCLE, IV DRIP
     Route: 042
     Dates: start: 20250618, end: 20250801
  3. ATEZOLIZUMAB [Concomitant]
     Active Substance: ATEZOLIZUMAB
     Indication: Small cell lung cancer
     Dosage: STRENGTH: 10 MILLIGRAM PER MILLILITRE, Q3W, IV DRIP
     Route: 042
     Dates: start: 20250618, end: 20250730

REACTIONS (1)
  - Sepsis [Recovered/Resolved]

NARRATIVE: CASE EVENT DATE: 20250809
